FAERS Safety Report 8537958-5 (Version None)
Quarter: 2012Q3

REPORT INFORMATION
  Report Type: 
  Country: None (occurrence: None)
  Receive Date: 20120725
  Receipt Date: 20120720
  Transmission Date: 20120928
  Serious: Yes (Hospitalization)
  Sender: FDA-Public Use
  Company Number: BR-ROCHE-1091257

PATIENT
  Sex: Female
  Weight: 49 kg

DRUGS (5)
  1. LORAZEPAM [Concomitant]
  2. ASPIRIN [Concomitant]
  3. MABTHERA [Suspect]
     Indication: RHEUMATOID ARTHRITIS
     Route: 042
  4. LASIX [Concomitant]
  5. CARVEDILOL [Concomitant]

REACTIONS (3)
  - COUGH [None]
  - LUNG DISORDER [None]
  - CARDIAC FAILURE [None]
